FAERS Safety Report 23044591 (Version 5)
Quarter: 2025Q1

REPORT INFORMATION
  Report Type: Report from Study
  Country: CA (occurrence: CA)
  Receive Date: 20231009
  Receipt Date: 20250123
  Transmission Date: 20250409
  Serious: Yes (Other)
  Sender: TAKEDA
  Company Number: CA-TAKEDA-2023TUS095652

PATIENT
  Age: 15 Year
  Sex: Male

DRUGS (4)
  1. VEDOLIZUMAB [Suspect]
     Active Substance: VEDOLIZUMAB
     Indication: Crohn^s disease
  2. VEDOLIZUMAB [Suspect]
     Active Substance: VEDOLIZUMAB
     Dosage: 300 MILLIGRAM, Q4WEEKS
     Dates: start: 20231113, end: 20250102
  3. ASACOL [Concomitant]
     Active Substance: MESALAMINE
     Dosage: UNK UNK, BID
     Dates: start: 2021
  4. STELARA [Concomitant]
     Active Substance: USTEKINUMAB

REACTIONS (5)
  - Diarrhoea haemorrhagic [Unknown]
  - Crohn^s disease [Unknown]
  - Treatment failure [Not Recovered/Not Resolved]
  - Off label use [Unknown]
  - Drug level decreased [Unknown]

NARRATIVE: CASE EVENT DATE: 20230913
